FAERS Safety Report 21520501 (Version 1)
Quarter: 2022Q4

REPORT INFORMATION
  Report Type: Report from Study
  Country: US (occurrence: US)
  Receive Date: 20221028
  Receipt Date: 20221028
  Transmission Date: 20230113
  Serious: Yes (Other)
  Sender: FDA-Public Use
  Company Number: US-TEVA-2022-US-2820301

PATIENT
  Age: 39 Year
  Sex: Female

DRUGS (1)
  1. CLARAVIS [Suspect]
     Active Substance: ISOTRETINOIN
     Indication: Product used for unknown indication
     Dosage: 40 MILLIGRAM
     Route: 065
     Dates: start: 20221018

REACTIONS (4)
  - Confusional state [Unknown]
  - Headache [Unknown]
  - Dyspepsia [Unknown]
  - Epistaxis [Unknown]

NARRATIVE: CASE EVENT DATE: 20221018
